FAERS Safety Report 5222723-7 (Version None)
Quarter: 2007Q1

REPORT INFORMATION
  Report Type: 
  Country: None (occurrence: None)
  Receive Date: 20070129
  Receipt Date: 20061115
  Transmission Date: 20070707
  Serious: No
  Sender: FDA-Public Use
  Company Number: US-GLAXOSMITHKLINE-A0627677A

PATIENT
  Age: 26 Year
  Sex: Female

DRUGS (4)
  1. COMBIVIR [Suspect]
     Indication: ANTIVIRAL PROPHYLAXIS
     Route: 048
     Dates: start: 20040101, end: 20040101
  2. BENTYL [Concomitant]
  3. ALBUTEROL [Concomitant]
  4. QVAR 40 [Concomitant]

REACTIONS (2)
  - COSTOCHONDRITIS [None]
  - MYALGIA [None]
